FAERS Safety Report 25571433 (Version 1)
Quarter: 2025Q3

REPORT INFORMATION
  Report Type: Spontaneous
  Country: US (occurrence: US)
  Receive Date: 20250717
  Receipt Date: 20250717
  Transmission Date: 20251020
  Serious: Yes (Death, Hospitalization, Other)
  Sender: RANBAXY
  Company Number: US-SUN PHARMACEUTICAL INDUSTRIES LTD-2025R1-516914

PATIENT
  Age: 73 Year
  Sex: Female

DRUGS (3)
  1. CEFADROXIL [Suspect]
     Active Substance: CEFADROXIL
     Indication: Pruritus
     Route: 065
  2. GABAPENTIN [Suspect]
     Active Substance: GABAPENTIN
     Indication: Pruritus
     Route: 065
  3. TRIAMCINOLONE [Suspect]
     Active Substance: TRIAMCINOLONE
     Indication: Pruritus
     Route: 065

REACTIONS (7)
  - Sepsis [Fatal]
  - Anaemia [Unknown]
  - Bacteraemia [Unknown]
  - Leukopenia [Unknown]
  - Staphylococcal skin infection [Unknown]
  - Serratia infection [Unknown]
  - Sedation [Unknown]
